FAERS Safety Report 17403139 (Version 1)
Quarter: 2020Q1

REPORT INFORMATION
  Report Type: Spontaneous
  Country: US (occurrence: US)
  Receive Date: 20200211
  Receipt Date: 20200211
  Transmission Date: 20200409
  Serious: Yes (Hospitalization)
  Sender: FDA-Public Use
  Company Number: US-JNJFOC-20200202258

PATIENT
  Age: 34 Year
  Sex: Female

DRUGS (13)
  1. INOSITOL [Concomitant]
     Active Substance: INOSITOL
     Dosage: 2 TABLETS TWICE DAILY
  2. EQUETRO [Concomitant]
     Active Substance: CARBAMAZEPINE
  3. RISPERDAL [Concomitant]
     Active Substance: RISPERIDONE
     Dosage: QAM
  4. KLONOPIN [Concomitant]
     Active Substance: CLONAZEPAM
  5. RISPERDAL [Suspect]
     Active Substance: RISPERIDONE
     Indication: PRODUCT USED FOR UNKNOWN INDICATION
     Route: 065
  6. COGENTIN [Concomitant]
     Active Substance: BENZTROPINE MESYLATE
     Dosage: QHS- BED TIME
  7. RISPERDAL [Concomitant]
     Active Substance: RISPERIDONE
     Dosage: QHS, AT NIGHT
  8. REVIA [Concomitant]
     Active Substance: NALTREXONE HYDROCHLORIDE
     Dosage: QAM
  9. LINDASOL [Concomitant]
     Dosage: BEFORE BREAKFAST
  10. LAMICTAL [Concomitant]
     Active Substance: LAMOTRIGINE
     Dosage: 2 TABLETS TWICE DAILY
  11. TRAZODONE [Concomitant]
     Active Substance: TRAZODONE HYDROCHLORIDE
     Dosage: EVERY NIGHT
  12. DEPAKOTE [Concomitant]
     Active Substance: DIVALPROEX SODIUM
  13. INDERAL [Concomitant]
     Active Substance: PROPRANOLOL HYDROCHLORIDE

REACTIONS (10)
  - Urinary tract infection [Recovered/Resolved]
  - Urinary incontinence [Unknown]
  - Insomnia [Unknown]
  - Respiratory failure [Unknown]
  - Metabolic encephalopathy [Unknown]
  - Bradycardia [Unknown]
  - Thrombocytopenia [Unknown]
  - Unresponsive to stimuli [Unknown]
  - Hypothermia [Unknown]
  - Hypotension [Unknown]

NARRATIVE: CASE EVENT DATE: 202001
